FAERS Safety Report 4851540-2 (Version None)
Quarter: 2005Q4

REPORT INFORMATION
  Report Type: 
  Country: None (occurrence: None)
  Receive Date: 20051212
  Receipt Date: 20051130
  Transmission Date: 20060501
  Serious: Yes (Other)
  Sender: FDA-Public Use
  Company Number: US-ROCHE-426927

PATIENT
  Age: 59 Year
  Sex: Female
  Weight: 71.7 kg

DRUGS (5)
  1. BONIVA [Suspect]
     Indication: OSTEOPENIA
     Route: 048
     Dates: start: 20050915
  2. COLAZAL [Suspect]
     Route: 048
     Dates: start: 20051115
  3. PREDNISONE [Concomitant]
     Route: 048
  4. ASACOL [Concomitant]
     Route: 048
     Dates: end: 20051115
  5. AUGMENTIN [Concomitant]
     Route: 048
     Dates: start: 20051115, end: 20051115

REACTIONS (4)
  - COLITIS ULCERATIVE [None]
  - DYSPEPSIA [None]
  - RASH [None]
  - SINUSITIS [None]
